FAERS Safety Report 24749838 (Version 1)
Quarter: 2024Q4

REPORT INFORMATION
  Report Type: Spontaneous
  Country: FR (occurrence: FR)
  Receive Date: 20241218
  Receipt Date: 20241218
  Transmission Date: 20250115
  Serious: Yes (Life-Threatening, Hospitalization, Other)
  Sender: MERCK
  Company Number: None

PATIENT
  Age: 79 Year
  Sex: Female
  Weight: 81 kg

DRUGS (1)
  1. KEYTRUDA [Suspect]
     Active Substance: PEMBROLIZUMAB
     Indication: Clear cell renal cell carcinoma
     Dosage: 200 MILLIGRAM, ONCE
     Route: 042
     Dates: start: 20240911, end: 20240911

REACTIONS (4)
  - Myocarditis [Recovering/Resolving]
  - Myositis [Recovered/Resolved]
  - Thyroiditis [Not Recovered/Not Resolved]
  - Diaphragmatic paralysis [Recovered/Resolved]

NARRATIVE: CASE EVENT DATE: 20240926
